FAERS Safety Report 14679587 (Version 1)
Quarter: 2018Q1

REPORT INFORMATION
  Report Type: Spontaneous
  Country: US (occurrence: US)
  Receive Date: 20180323
  Receipt Date: 20180323
  Transmission Date: 20180509
  Serious: Yes (Hospitalization, Other)
  Sender: FDA-Public Use
  Company Number: None

PATIENT
  Age: 9 Year
  Sex: Female
  Weight: 22.5 kg

DRUGS (3)
  1. PAIN KILLERS [Concomitant]
     Active Substance: UNSPECIFIED INGREDIENT
  2. ORAL ANTIBIOTICS [Concomitant]
     Active Substance: UNSPECIFIED INGREDIENT
  3. CANTHARIDINE [Suspect]
     Active Substance: CANTHARIDIN
     Indication: PRODUCT USED FOR UNKNOWN INDICATION
     Dosage: STRENGTH: EXTREMELY TOXIC GTT DROPS?UANTITY:5 OUNCE(S);OTHER FREQUENCY:ONE TIME/BURN;?
     Route: 061
     Dates: start: 20180302, end: 20180302

REACTIONS (4)
  - Contraindicated product administered [None]
  - Chemical burn [None]
  - Product use issue [None]
  - Toxicity to various agents [None]

NARRATIVE: CASE EVENT DATE: 20180311
